FAERS Safety Report 5494884-6 (Version None)
Quarter: 2007Q4

REPORT INFORMATION
  Report Type: 
  Country: None (occurrence: None)
  Receive Date: 20071024
  Receipt Date: 20071016
  Transmission Date: 20080405
  Serious: Yes (Other)
  Sender: FDA-Public Use
  Company Number: US-SANOFI-SYNTHELABO-A03200706065

PATIENT
  Age: 55 Year
  Sex: Female
  Weight: 46.7 kg

DRUGS (1)
  1. AMBIEN CR [Suspect]
     Indication: INSOMNIA
     Dosage: UNK
     Route: 048
     Dates: start: 20060101

REACTIONS (4)
  - DIARRHOEA [None]
  - NAUSEA [None]
  - PANIC DISORDER [None]
  - WEIGHT DECREASED [None]
